FAERS Safety Report 4488583-7 (Version None)
Quarter: 2004Q4

REPORT INFORMATION
  Report Type: 
  Country: None (occurrence: None)
  Receive Date: 20041028
  Receipt Date: 20041028
  Transmission Date: 20050328
  Serious: Yes (Other)
  Sender: FDA-Public Use
  Company Number: None

PATIENT
  Age: 47 Year
  Sex: Female
  Weight: 57.6068 kg

DRUGS (6)
  1. CYMBALTA [Suspect]
     Indication: DEPRESSION
     Dosage: 1 PO DAILY
     Route: 048
     Dates: start: 20040923, end: 20041016
  2. THYROID TAB [Concomitant]
  3. VIVGUS [Concomitant]
  4. DOXEPIN HCL [Concomitant]
  5. KLONOPIN [Concomitant]
  6. ADDERALL 5 [Concomitant]

REACTIONS (8)
  - AGITATION [None]
  - ANORGASMIA [None]
  - ANXIETY [None]
  - DRUG WITHDRAWAL SYNDROME [None]
  - INSOMNIA [None]
  - IRRITABILITY [None]
  - LOSS OF LIBIDO [None]
  - WEIGHT DECREASED [None]
